FAERS Safety Report 5265187-X (Version None)
Quarter: 2007Q1

REPORT INFORMATION
  Report Type: 
  Country: None (occurrence: None)
  Receive Date: 20061213
  Receipt Date: 20041124
  Transmission Date: 20070707
  Serious: No
  Sender: FDA-Public Use
  Company Number: 2004UW24190

PATIENT
  Sex: Female

DRUGS (1)
  1. NOLVADEX [Suspect]
     Dosage: 20 MG QD PO
     Route: 048

REACTIONS (2)
  - ENDOMETRIAL CANCER [None]
  - SMEAR CERVIX ABNORMAL [None]
